FAERS Safety Report 15359101 (Version 1)
Quarter: 2018Q3

REPORT INFORMATION
  Report Type: Report from Study
  Country: None (occurrence: CA)
  Receive Date: 20180906
  Receipt Date: 20180906
  Transmission Date: 20181010
  Serious: Yes (Other)
  Sender: FDA-Public Use
  Company Number: CA-ABBVIE-18K-028-2443559-00

PATIENT
  Age: 18 Year
  Sex: Male

DRUGS (5)
  1. INDOMETHACIN. [Concomitant]
     Active Substance: INDOMETHACIN
     Indication: CROHN^S DISEASE
  2. SULFASALAZINE. [Concomitant]
     Active Substance: SULFASALAZINE
     Indication: CROHN^S DISEASE
  3. METHOTREXATE. [Concomitant]
     Active Substance: METHOTREXATE
     Indication: CROHN^S DISEASE
  4. HUMIRA [Suspect]
     Active Substance: ADALIMUMAB
     Indication: CROHN^S DISEASE
     Route: 058
     Dates: start: 20150530
  5. HUMIRA [Suspect]
     Active Substance: ADALIMUMAB
     Indication: JUVENILE IDIOPATHIC ARTHRITIS

REACTIONS (21)
  - Abnormal faeces [Recovering/Resolving]
  - Peripheral swelling [Unknown]
  - Axial spondyloarthritis [Not Recovered/Not Resolved]
  - Flatulence [Unknown]
  - Gastrointestinal wall thickening [Not Recovered/Not Resolved]
  - Neutrophil count decreased [Unknown]
  - Nausea [Not Recovered/Not Resolved]
  - Gastrointestinal erosion [Not Recovered/Not Resolved]
  - Weight gain poor [Unknown]
  - Proctalgia [Unknown]
  - Gastrointestinal disorder [Not Recovered/Not Resolved]
  - Lymphocyte count decreased [Unknown]
  - Arthritis [Not Recovered/Not Resolved]
  - Vomiting [Not Recovered/Not Resolved]
  - White blood cell count decreased [Unknown]
  - Abdominal distension [Not Recovered/Not Resolved]
  - Skin exfoliation [Unknown]
  - Varicella zoster virus infection [Unknown]
  - Gastrointestinal mucosa hyperaemia [Not Recovered/Not Resolved]
  - Night sweats [Not Recovered/Not Resolved]
  - Crohn^s disease [Not Recovered/Not Resolved]

NARRATIVE: CASE EVENT DATE: 20180711
